FAERS Safety Report 10598510 (Version 2)
Quarter: 2015Q1

REPORT INFORMATION
  Report Type: Spontaneous
  Country: US (occurrence: US)
  Receive Date: 20141121
  Receipt Date: 20150324
  Transmission Date: 20150720
  Serious: Yes (Other)
  Sender: FDA-Public Use
  Company Number: CHPA2014US015545

PATIENT
  Sex: Male

DRUGS (4)
  1. COUMADIN [Suspect]
     Active Substance: WARFARIN SODIUM
     Indication: PRODUCT USED FOR UNKNOWN INDICATION
     Dosage: UNK, UNK
  2. VOLTAREN [Suspect]
     Active Substance: DICLOFENAC SODIUM
     Indication: MUSCULOSKELETAL PAIN
     Dosage: 1 G,  BID TO SHOULDER
     Route: 061
     Dates: start: 20150318, end: 20150318
  3. VOLTAREN [Suspect]
     Active Substance: DICLOFENAC SODIUM
     Dosage: UNK
  4. VOLTAREN [Suspect]
     Active Substance: DICLOFENAC SODIUM
     Indication: ARTHRALGIA
     Dosage: 2 G, BID TO KNEE
     Route: 061
     Dates: start: 201409, end: 201409

REACTIONS (9)
  - Product use issue [Unknown]
  - Drug administered at inappropriate site [Unknown]
  - Musculoskeletal pain [Recovering/Resolving]
  - Underdose [Unknown]
  - Therapeutic response unexpected [Unknown]
  - Cardiac disorder [Unknown]
  - Inappropriate schedule of drug administration [Unknown]
  - Weight increased [Unknown]
  - Pain [Unknown]

NARRATIVE: CASE EVENT DATE: 2014
